FAERS Safety Report 9361279 (Version 1)
Quarter: 2013Q2

REPORT INFORMATION
  Report Type: Report from Study
  Country: TR (occurrence: TR)
  Receive Date: 20130621
  Receipt Date: 20130621
  Transmission Date: 20140414
  Serious: Yes (Hospitalization)
  Sender: FDA-Public Use
  Company Number: TR-US-EMD SERONO, INC.-7218368

PATIENT
  Sex: Female
  Weight: 69 kg

DRUGS (3)
  1. REBIF [Suspect]
     Indication: MULTIPLE SCLEROSIS
     Route: 058
     Dates: start: 201301
  2. MINOSET [Suspect]
     Indication: ANALGESIC THERAPY
     Route: 048
     Dates: start: 201301
  3. MINOSET [Suspect]
     Indication: ANTIPYRESIS

REACTIONS (1)
  - Vision blurred [Not Recovered/Not Resolved]
